FAERS Safety Report 4849744-8 (Version None)
Quarter: 2005Q4

REPORT INFORMATION
  Report Type: 
  Country: None (occurrence: None)
  Receive Date: 20051115
  Receipt Date: 20050721
  Transmission Date: 20060501
  Serious: Yes (Hospitalization)
  Sender: FDA-Public Use
  Company Number: S05-USA-03657-01

PATIENT
  Age: 75 Year
  Sex: Male

DRUGS (1)
  1. NAMENDA [Suspect]
     Dates: start: 20040101

REACTIONS (2)
  - AGGRESSION [None]
  - FALL [None]
